FAERS Safety Report 17880578 (Version 1)
Quarter: 2020Q2

REPORT INFORMATION
  Report Type: Spontaneous
  Country: US (occurrence: US)
  Receive Date: 20200609
  Receipt Date: 20200609
  Transmission Date: 20200714
  Serious: Yes (Hospitalization)
  Sender: FDA-Public Use
  Company Number: None

PATIENT
  Age: 80 Year
  Sex: Male

DRUGS (1)
  1. TOBRAMYCIN  300MG /5ML 20ML [Suspect]
     Active Substance: TOBRAMYCIN
     Indication: ASTHMA
     Dosage: 1 VIAL Q12HR INH 42 D ON - 42 D OFF
     Route: 055
     Dates: start: 20190924

REACTIONS (2)
  - Gastrointestinal disorder [None]
  - Respiratory disorder [None]

NARRATIVE: CASE EVENT DATE: 202005
